FAERS Safety Report 10971795 (Version 1)
Quarter: 2015Q1

REPORT INFORMATION
  Report Type: Report from Study
  Country: DE (occurrence: DE)
  Receive Date: 20150331
  Receipt Date: 20150331
  Transmission Date: 20150721
  Serious: Yes (Hospitalization)
  Sender: FDA-Public Use
  Company Number: DE-BRISTOL-MYERS SQUIBB COMPANY-19944594

PATIENT
  Age: 72 Year
  Sex: Female
  Weight: 46 kg

DRUGS (10)
  1. TOREM [Concomitant]
     Active Substance: TORSEMIDE
     Dosage: 2.5 MG, UNK
     Dates: start: 20131227
  2. PARACETAMOL [Concomitant]
     Active Substance: ACETAMINOPHEN
  3. KREON [Concomitant]
     Active Substance: PANCRELIPASE
     Dosage: 1DF:120000 IE
     Route: 065
  4. METRONIDAZOLE. [Concomitant]
     Active Substance: METRONIDAZOLE
     Dosage: 1200 MG, UNK
     Dates: start: 20131227
  5. NOVORAPID [Concomitant]
     Active Substance: INSULIN ASPART
  6. LANTUS [Concomitant]
     Active Substance: INSULIN GLARGINE
  7. LEVOFLOXACIN. [Concomitant]
     Active Substance: LEVOFLOXACIN
     Dosage: 500 MG, UNK
     Dates: start: 20131227
  8. VOMEX A [Concomitant]
     Active Substance: DIMENHYDRINATE
  9. PANTOZOL [Concomitant]
     Active Substance: PANTOPRAZOLE SODIUM
     Dosage: 20 MG, UNK
  10. NIVOLUMAB [Suspect]
     Active Substance: NIVOLUMAB
     Indication: METASTATIC MALIGNANT MELANOMA
     Dosage: INTERRUPTED ON 03-JAN-2014  250 ML.
     Route: 042
     Dates: start: 20131212

REACTIONS (2)
  - Malaise [Recovered/Resolved]
  - Anaemia [Recovered/Resolved]

NARRATIVE: CASE EVENT DATE: 20131219
